FAERS Safety Report 17508216 (Version 6)
Quarter: 2020Q2

REPORT INFORMATION
  Report Type: Spontaneous
  Country: US (occurrence: US)
  Receive Date: 20200306
  Receipt Date: 20200514
  Transmission Date: 20200713
  Serious: No
  Sender: FDA-Public Use
  Company Number: US-GLAXOSMITHKLINE-US2020AMR035864

PATIENT
  Sex: Female

DRUGS (3)
  1. ZEJULA [Suspect]
     Active Substance: NIRAPARIB
     Indication: OVARIAN CANCER
     Dosage: 300 MG, QD
     Route: 048
  2. ZEJULA [Suspect]
     Active Substance: NIRAPARIB
     Dosage: 300 MG, DAILY
     Dates: start: 20200212
  3. ZEJULA [Suspect]
     Active Substance: NIRAPARIB
     Dosage: 2 DF (2 CAPSULE DAILY)
     Route: 048

REACTIONS (6)
  - Nausea [Recovering/Resolving]
  - Constipation [Unknown]
  - Abdominal distension [Not Recovered/Not Resolved]
  - Off label use [Unknown]
  - Vomiting [Recovering/Resolving]
  - Underdose [Unknown]
